FAERS Safety Report 13759471 (Version 3)
Quarter: 2017Q3

REPORT INFORMATION
  Report Type: Report from Study
  Country: CO (occurrence: CO)
  Receive Date: 20170717
  Receipt Date: 20170822
  Transmission Date: 20171127
  Serious: Yes (Other)
  Sender: FDA-Public Use
  Company Number: CO-SA-2017SA125012

PATIENT
  Age: 39 Year
  Sex: Male

DRUGS (1)
  1. LEMTRADA [Suspect]
     Active Substance: ALEMTUZUMAB
     Indication: MULTIPLE SCLEROSIS
     Route: 041
     Dates: start: 20170612, end: 20170616

REACTIONS (4)
  - Malaise [Unknown]
  - Creatinine urine increased [Recovered/Resolved]
  - Tuberculosis [Unknown]
  - Influenza [Unknown]

NARRATIVE: CASE EVENT DATE: 20170712
